FAERS Safety Report 8583990-5 (Version None)
Quarter: 2012Q3

REPORT INFORMATION
  Report Type: 
  Country: None (occurrence: None)
  Receive Date: 20120810
  Receipt Date: 20120713
  Transmission Date: 20120928
  Serious: No
  Sender: FDA-Public Use
  Company Number: US-009507513-1207USA007667

PATIENT

DRUGS (9)
  1. SODIUM HYALURONATE [Suspect]
     Indication: OSTEOARTHRITIS
     Dosage: UNK, ONCE
     Dates: start: 20120518, end: 20120518
  2. SODIUM HYALURONATE [Suspect]
     Dosage: UNK, ONCE
     Dates: start: 20120525, end: 20120525
  3. VITAMINS (UNSPECIFIED) [Concomitant]
  4. VERAPAMIL [Suspect]
     Indication: BLOOD PRESSURE INCREASED
     Dosage: UNK, PRN
     Dates: start: 20120101
  5. VERAPAMIL [Suspect]
     Dosage: UNK
     Dates: start: 20120606, end: 20120608
  6. COZAAR [Suspect]
     Indication: BLOOD PRESSURE INCREASED
     Dosage: UNK, PRN
     Route: 048
     Dates: start: 20120101
  7. SODIUM HYALURONATE [Suspect]
     Dosage: UNK, ONCE
     Dates: start: 20120601, end: 20120601
  8. SODIUM HYALURONATE [Suspect]
     Dosage: UNK
  9. COZAAR [Suspect]
     Dosage: UNK
     Dates: start: 20120611

REACTIONS (10)
  - HYPERSOMNIA [None]
  - INJECTION SITE JOINT SWELLING [None]
  - BALANCE DISORDER [None]
  - FATIGUE [None]
  - CONSTIPATION [None]
  - DIZZINESS [None]
  - BLOOD PRESSURE INCREASED [None]
  - BACK PAIN [None]
  - INJECTION SITE JOINT PAIN [None]
  - NAUSEA [None]
